FAERS Safety Report 25907762 (Version 4)
Quarter: 2025Q4

REPORT INFORMATION
  Report Type: Spontaneous
  Country: CN (occurrence: CN)
  Receive Date: 20251010
  Receipt Date: 20251110
  Transmission Date: 20260118
  Serious: Yes (Death)
  Sender: NOVO NORDISK
  Company Number: CN-NOVOPROD-1538015

PATIENT
  Age: 91 Year
  Sex: Female

DRUGS (1)
  1. INSULIN ASPART [Suspect]
     Active Substance: INSULIN ASPART
     Indication: Blood glucose abnormal
     Dosage: UNK

REACTIONS (2)
  - Lung disorder [Fatal]
  - Blood glucose abnormal [Fatal]
